FAERS Safety Report 22915955 (Version 2)
Quarter: 2023Q4

REPORT INFORMATION
  Report Type: Other
  Country: DE (occurrence: None)
  Receive Date: 20230907
  Receipt Date: 20231006
  Transmission Date: 20240110
  Serious: Yes (Other)
  Sender: FDA-Public Use
  Company Number: DE-ROCHE-3391912

PATIENT
  Age: 64 Year
  Sex: Female

DRUGS (1)
  1. VABYSMO [Suspect]
     Active Substance: FARICIMAB-SVOA
     Indication: Age-related macular degeneration
     Route: 050
     Dates: start: 20230511, end: 20230713

REACTIONS (6)
  - Blindness [Recovered/Resolved]
  - Iridocyclitis [Recovered/Resolved]
  - Uveitis [Recovered/Resolved]
  - Corneal opacity [Recovered/Resolved]
  - Intraocular pressure increased [Recovered/Resolved]
  - Corneal endotheliitis [Unknown]

NARRATIVE: CASE EVENT DATE: 20230714
